FAERS Safety Report 17039431 (Version 3)
Quarter: 2019Q4

REPORT INFORMATION
  Report Type: Spontaneous
  Country: DE (occurrence: DE)
  Receive Date: 20191115
  Receipt Date: 20191213
  Transmission Date: 20200122
  Serious: Yes (Other)
  Sender: FDA-Public Use
  Company Number: DE-ALLERGAN-1946329US

PATIENT
  Sex: Female

DRUGS (7)
  1. OZURDEX [Suspect]
     Active Substance: DEXAMETHASONE
     Dosage: 0.7 MG, SINGLE
     Route: 031
     Dates: start: 201707, end: 201707
  2. OZURDEX [Suspect]
     Active Substance: DEXAMETHASONE
     Dosage: 0.7 MG, SINGLE
     Route: 031
     Dates: start: 201805, end: 201805
  3. DEKRISTOL [Concomitant]
     Active Substance: CHOLECALCIFEROL
  4. OZURDEX [Suspect]
     Active Substance: DEXAMETHASONE
     Indication: DIABETIC RETINAL OEDEMA
     Dosage: 0.7 MG, SINGLE
     Route: 031
     Dates: start: 20191021, end: 20191021
  5. INSULIN [Concomitant]
     Active Substance: INSULIN NOS
  6. BERLTHYROX [Concomitant]
     Active Substance: LEVOTHYROXINE SODIUM
  7. OZURDEX [Suspect]
     Active Substance: DEXAMETHASONE
     Dosage: 0.7 MG, SINGLE
     Route: 031
     Dates: start: 201904, end: 201904

REACTIONS (2)
  - Product administered at inappropriate site [Unknown]
  - Complication of device insertion [Recovered/Resolved with Sequelae]

NARRATIVE: CASE EVENT DATE: 20191021
